FAERS Safety Report 8486527-4 (Version None)
Quarter: 2012Q3

REPORT INFORMATION
  Report Type: 
  Country: None (occurrence: None)
  Receive Date: 20120703
  Receipt Date: 20090803
  Transmission Date: 20120928
  Serious: Yes (Hospitalization, Other)
  Sender: FDA-Public Use
  Company Number: PHMT2007CA01729

PATIENT
  Sex: Female

DRUGS (17)
  1. CHOLESTYRAMINE [Concomitant]
  2. RADIATION TREATMENT [Concomitant]
  3. NORVASC [Concomitant]
     Dosage: UNK
  4. SANDOSTATIN LAR [Suspect]
     Dosage: 40 MG, EVERY 4 WEEKS
     Route: 030
  5. SANDOSTATIN LAR [Suspect]
     Dosage: 30 MG EVERY 4 WEEKS
     Route: 030
  6. NADOLOL [Concomitant]
     Dosage: UNK
  7. FUROSEMIDE [Concomitant]
     Dosage: UNK
  8. DIURETICS [Concomitant]
     Dates: end: 20100630
  9. SANDOSTATIN LAR [Suspect]
     Indication: NEUROENDOCRINE TUMOUR
     Dosage: 40 MG, TIW
     Route: 030
     Dates: start: 20000701
  10. SANDOSTATIN LAR [Suspect]
     Dosage: 40 MG, EVERY 3 WEEKS
     Route: 030
  11. SANDOSTATIN LAR [Suspect]
     Dosage: 30 MG, EVERY 4 WEEKS
     Route: 030
     Dates: end: 20090806
  12. SERTRALINE HYDROCHLORIDE [Concomitant]
     Dosage: UNK
  13. ESTROGEN NOS [Concomitant]
     Dosage: UNK
  14. PANTOPRAZOLE [Concomitant]
  15. SANDOSTATIN LAR [Suspect]
     Dosage: 30 MG, QMO
     Route: 030
     Dates: start: 20090806
  16. RABEPRAZOLE SODIUM [Concomitant]
     Dosage: UNK
  17. CHLORTHALIDONE [Concomitant]
     Dosage: UNK

REACTIONS (31)
  - DEPRESSION [None]
  - EPISTAXIS [None]
  - MUSCLE SPASMS [None]
  - ABDOMINAL PAIN UPPER [None]
  - PAIN [None]
  - BLOOD PRESSURE DECREASED [None]
  - PALLOR [None]
  - BACK PAIN [None]
  - ASTHENIA [None]
  - DYSPNOEA [None]
  - ARTHRALGIA [None]
  - MUSCULOSKELETAL CHEST PAIN [None]
  - POST PROCEDURAL COMPLICATION [None]
  - DIARRHOEA [None]
  - NAUSEA [None]
  - CONSTIPATION [None]
  - HEPATIC NEOPLASM [None]
  - HAEMOGLOBIN DECREASED [None]
  - URINARY RETENTION [None]
  - NASOPHARYNGITIS [None]
  - ABDOMINAL PAIN [None]
  - NEOPLASM MALIGNANT [None]
  - PERICARDIAL EFFUSION [None]
  - RECTAL HAEMORRHAGE [None]
  - LOCAL SWELLING [None]
  - BLOOD PRESSURE INCREASED [None]
  - INFLUENZA LIKE ILLNESS [None]
  - FATIGUE [None]
  - THYROID DISORDER [None]
  - BIOPSY THYROID GLAND [None]
  - HEADACHE [None]
